FAERS Safety Report 9562528 (Version 1)
Quarter: 2013Q3

REPORT INFORMATION
  Report Type: Spontaneous
  Country: US (occurrence: None)
  Receive Date: 20130926
  Receipt Date: 20130926
  Transmission Date: 20140515
  Serious: Yes (Life-Threatening, Other)
  Sender: FDA-Public Use
  Company Number: None

PATIENT
  Age: 55 Year
  Sex: Male
  Weight: 115.67 kg

DRUGS (1)
  1. METFORMIN 1000 MG [Suspect]
     Indication: DIABETES MELLITUS
     Dosage: 1 PILL

REACTIONS (2)
  - Drug ineffective [None]
  - Product quality issue [None]
